FAERS Safety Report 5026514-1 (Version None)
Quarter: 2006Q2

REPORT INFORMATION
  Report Type: 
  Country: None (occurrence: None)
  Receive Date: 20060428
  Receipt Date: 20050228
  Transmission Date: 20061013
  Serious: Yes (Hospitalization)
  Sender: FDA-Public Use
  Company Number: MK200502-0266-1

PATIENT
  Sex: Female

DRUGS (1)
  1. RESTORIL [Suspect]
     Indication: SUICIDE ATTEMPT
     Dosage: 10 TABLETS, P.O.
     Route: 048
     Dates: start: 20040924

REACTIONS (5)
  - COMA [None]
  - DEPRESSION [None]
  - DRUG TOXICITY [None]
  - OVERDOSE [None]
  - SUICIDE ATTEMPT [None]
